FAERS Safety Report 5267832-1 (Version None)
Quarter: 2007Q1

REPORT INFORMATION
  Report Type: 
  Country: None (occurrence: None)
  Receive Date: 20070316
  Receipt Date: 20070308
  Transmission Date: 20070707
  Serious: Yes (Other)
  Sender: FDA-Public Use
  Company Number: GB-PFIZER INC-2007019005

PATIENT
  Sex: Female

DRUGS (6)
  1. SULFASALAZINE [Suspect]
     Indication: RHEUMATOID ARTHRITIS
  2. MAXTREX [Suspect]
     Indication: RHEUMATOID ARTHRITIS
  3. PREDNISOLONE [Concomitant]
  4. FOLIC ACID [Concomitant]
  5. CALCIUM [Concomitant]
  6. ACTONEL [Concomitant]

REACTIONS (4)
  - MOUTH ULCERATION [None]
  - NAUSEA [None]
  - ORAL PAIN [None]
  - WEIGHT INCREASED [None]
